FAERS Safety Report 4598896-6 (Version None)
Quarter: 2005Q1

REPORT INFORMATION
  Report Type: 
  Country: None (occurrence: None)
  Receive Date: 20050302
  Receipt Date: 20050216
  Transmission Date: 20050727
  Serious: Yes (Other)
  Sender: FDA-Public Use
  Company Number: USA-2003-0009614

PATIENT
  Age: 40 Year
  Sex: Female

DRUGS (10)
  1. OXYCONTIN [Suspect]
     Dosage: 40 MG, UNK, UNKNOWN
  2. CELEXA [Concomitant]
  3. ELMIRON [Concomitant]
  4. FLEXERIL [Concomitant]
  5. XANAX [Concomitant]
  6. WELLBUTRIN [Concomitant]
  7. KLONOPIN [Concomitant]
  8. DARVOCET [Concomitant]
  9. SEROQUEL [Concomitant]
  10. DOXEPIN HCL [Concomitant]

REACTIONS (23)
  - AGGRESSION [None]
  - AGITATION [None]
  - ANXIETY [None]
  - BACK PAIN [None]
  - CONDITION AGGRAVATED [None]
  - CONVULSION [None]
  - COUGH [None]
  - CRYING [None]
  - DEPRESSION [None]
  - DRUG DEPENDENCE [None]
  - DRUG WITHDRAWAL SYNDROME [None]
  - DYSPEPSIA [None]
  - EAR PRURITUS [None]
  - FEAR OF WEIGHT GAIN [None]
  - IRRITABLE BOWEL SYNDROME [None]
  - MANIA [None]
  - MEDICATION ERROR [None]
  - MEDICATION TAMPERING [None]
  - MENTAL STATUS CHANGES [None]
  - PAIN [None]
  - SKIN IRRITATION [None]
  - SUICIDAL IDEATION [None]
  - WEIGHT DECREASED [None]
